FAERS Safety Report 8807044 (Version 1)
Quarter: 2012Q4

REPORT INFORMATION
  Report Type: 
  Country: US (occurrence: US)
  Receive Date: 20120925
  Receipt Date: 20120925
  Transmission Date: 20130627
  Serious: No
  Sender: FDA-Public Use
  Company Number: US-TEVA-360520USA

PATIENT
  Age: 57 Year
  Sex: Male

DRUGS (2)
  1. AZILECT [Suspect]
     Indication: PARKINSON^S DISEASE
     Dosage: .5 mg for approx. 3 weeks, then titrated up to 1 mg
     Route: 048
     Dates: start: 201207
  2. SINEMET [Concomitant]

REACTIONS (1)
  - Weight decreased [Recovered/Resolved]
